FAERS Safety Report 12273963 (Version 1)
Quarter: 2016Q2

REPORT INFORMATION
  Report Type: Spontaneous
  Country: RO (occurrence: RO)
  Receive Date: 20160415
  Receipt Date: 20160415
  Transmission Date: 20160815
  Serious: Yes (Life-Threatening, Hospitalization)
  Sender: FDA-Public Use
  Company Number: PHHY2013RO175993

PATIENT
  Age: 23 Year
  Sex: Female

DRUGS (1)
  1. OXACILLIN [Suspect]
     Active Substance: OXACILLIN SODIUM
     Indication: TOOTH ABSCESS
     Dosage: 500 MG, BID
     Route: 048
     Dates: start: 20131117, end: 20131119

REACTIONS (14)
  - Dyspnoea [Recovered/Resolved]
  - Tremor [Recovered/Resolved]
  - Pulse absent [Recovered/Resolved]
  - Vomiting [Recovered/Resolved]
  - Agitation [Recovered/Resolved]
  - Erythema [Recovered/Resolved]
  - Syncope [Recovered/Resolved]
  - Fatigue [Recovered/Resolved]
  - Amnesia [Recovered/Resolved]
  - Gait disturbance [Recovered/Resolved]
  - Cyanosis [Recovered/Resolved]
  - Hypotension [Recovered/Resolved]
  - Conjunctival hyperaemia [Recovered/Resolved]
  - Chills [Recovered/Resolved]

NARRATIVE: CASE EVENT DATE: 20131119
